FAERS Safety Report 5316937-5 (Version None)
Quarter: 2007Q2

REPORT INFORMATION
  Report Type: 
  Country: None (occurrence: None)
  Receive Date: 20070501
  Receipt Date: 20070501
  Transmission Date: 20071010
  Serious: Yes (Hospitalization, Disabling)
  Sender: FDA-Public Use
  Company Number: None

PATIENT
  Sex: Male
  Weight: 99.7913 kg

DRUGS (2)
  1. LEVAQUIN [Suspect]
     Indication: DIABETIC FOOT INFECTION
     Dosage: 750 MG  DAILY  PO
     Route: 048
     Dates: start: 20070326, end: 20070409
  2. ZYVOX [Suspect]
     Dosage: 600 MG  TWICE DAILY  PO
     Route: 048
     Dates: start: 20070326, end: 20070409

REACTIONS (1)
  - TENDON RUPTURE [None]
